FAERS Safety Report 8832149 (Version 2)
Quarter: 2014Q1

REPORT INFORMATION
  Report Type: Report from Study
  Country: US (occurrence: US)
  Receive Date: 20121009
  Receipt Date: 20140318
  Transmission Date: 20141002
  Serious: Yes (Other)
  Sender: FDA-Public Use
  Company Number: US-ROCHE-1135232

PATIENT
  Sex: Female
  Weight: 90.8 kg

DRUGS (4)
  1. ACTEMRA [Suspect]
     Indication: RHEUMATOID ARTHRITIS
     Route: 042
  2. ENBREL [Concomitant]
     Indication: RHEUMATOID ARTHRITIS
  3. HUMIRA [Concomitant]
     Indication: RHEUMATOID ARTHRITIS
  4. REMICADE [Concomitant]
     Indication: RHEUMATOID ARTHRITIS

REACTIONS (17)
  - Loss of consciousness [Unknown]
  - Dyspnoea [Unknown]
  - Swelling face [Unknown]
  - Abdominal pain upper [Unknown]
  - Heart rate increased [Unknown]
  - Heart rate irregular [Unknown]
  - Burning sensation [Unknown]
  - Vomiting [Unknown]
  - Diarrhoea [Unknown]
  - Asthenia [Unknown]
  - Gastric disorder [Unknown]
  - Blood pressure increased [Unknown]
  - Feeling abnormal [Unknown]
  - Dizziness [Unknown]
  - Erythema [Unknown]
  - Flushing [Unknown]
  - Nausea [Unknown]
